FAERS Safety Report 15877868 (Version 1)
Quarter: 2019Q1

REPORT INFORMATION
  Report Type: Spontaneous
  Country: US (occurrence: US)
  Receive Date: 20190103
  Receipt Date: 20190103
  Transmission Date: 20190417
  Serious: No
  Sender: FDA-Public Use
  Company Number: None

PATIENT
  Age: 69 Year
  Sex: Female

DRUGS (1)
  1. STELARA [Suspect]
     Active Substance: USTEKINUMAB
     Dates: start: 201708

REACTIONS (5)
  - Product container issue [None]
  - Crohn^s disease [None]
  - Symptom recurrence [None]
  - Therapy cessation [None]
  - Manufacturing product shipping issue [None]

NARRATIVE: CASE EVENT DATE: 20190102
